FAERS Safety Report 9267857 (Version 1)
Quarter: 2013Q2

REPORT INFORMATION
  Report Type: Spontaneous
  Country: US (occurrence: US)
  Receive Date: 20130502
  Receipt Date: 20130502
  Transmission Date: 20140414
  Serious: No
  Sender: FDA-Public Use
  Company Number: US-ALEXION-A201201109

PATIENT
  Sex: 0

DRUGS (2)
  1. SOLIRIS 300MG [Suspect]
     Indication: HAEMOLYTIC URAEMIC SYNDROME
     Dosage: 1200 MG, Q2W
     Route: 042
     Dates: start: 201201
  2. SOLIRIS 300MG [Suspect]
     Dosage: 900 MG, QW
     Route: 042

REACTIONS (3)
  - Platelet count decreased [Recovering/Resolving]
  - Blood lactate dehydrogenase increased [Unknown]
  - Haemoglobin decreased [Not Recovered/Not Resolved]
